FAERS Safety Report 22525871 (Version 1)
Quarter: 2023Q2

REPORT INFORMATION
  Report Type: Spontaneous
  Country: US (occurrence: US)
  Receive Date: 20230606
  Receipt Date: 20230606
  Transmission Date: 20230722
  Serious: No
  Sender: FDA-Public Use
  Company Number: US-AMNEAL PHARMACEUTICALS-2023-AMRX-00985

PATIENT
  Sex: Female

DRUGS (2)
  1. ESTRADIOL AND PROGESTERONE [Suspect]
     Active Substance: ESTRADIOL\PROGESTERONE
     Indication: Hot flush
     Dosage: UNK
     Route: 065
  2. ESTRADIOL AND PROGESTERONE [Suspect]
     Active Substance: ESTRADIOL\PROGESTERONE
     Indication: Night sweats

REACTIONS (5)
  - Depression [Recovered/Resolved]
  - Vulvovaginal discomfort [Recovered/Resolved]
  - Fatigue [Recovered/Resolved]
  - Headache [Recovered/Resolved]
  - Vaginal discharge [Recovered/Resolved]
